FAERS Safety Report 4401383-9 (Version None)
Quarter: 2004Q3

REPORT INFORMATION
  Report Type: 
  Country: None (occurrence: None)
  Receive Date: 20040907
  Receipt Date: 20040407
  Transmission Date: 20050211
  Serious: No
  Sender: FDA-Public Use
  Company Number: US-BRISTOL-MYERS SQUIBB COMPANY-12554267

PATIENT
  Age: 79 Year
  Sex: Female
  Weight: 59 kg

DRUGS (7)
  1. COUMADIN [Suspect]
     Indication: CEREBROVASCULAR ACCIDENT
     Dosage: AFTER 3/30/04: PROBABLY 2MG, 1 TABLET, ONCE DAILY 4 X'S WEEK + 3MG 3 X'S WEEK; THEN HELD.
     Route: 048
  2. CALCIUM [Concomitant]
     Indication: MINERAL SUPPLEMENTATION
     Dosage: TAKEN FOR SOME TIME
  3. MAGNESIUM [Concomitant]
     Indication: MINERAL SUPPLEMENTATION
     Dosage: TAKEN FOR SOME TIME
  4. MULTI-VITAMIN [Concomitant]
     Indication: VITAMIN SUPPLEMENTATION
     Dosage: TAKEN FOR SOME TIME
  5. BORON [Concomitant]
     Dosage: FROM APPROXIMATELY 4/2/04; ^SUPPLEMENT^
     Dates: start: 20040402
  6. ZINC [Concomitant]
     Dosage: FROM APPROXIMATELY 4/2/04; ^SUPPLEMENT^
     Dates: start: 20040402
  7. ACIDOPHILUS [Concomitant]
     Dosage: 9 TABLETS PER DAY FROM APPROXIMATELY 4/2/04; ^SUPPLEMENT^
     Dates: start: 20040402

REACTIONS (1)
  - INTERNATIONAL NORMALISED RATIO INCREASED [None]
